FAERS Safety Report 7870412-2 (Version None)
Quarter: 2011Q4

REPORT INFORMATION
  Report Type: 
  Country: None (occurrence: None)
  Receive Date: 20111029
  Receipt Date: 20110309
  Transmission Date: 20120403
  Serious: Yes (Hospitalization)
  Sender: FDA-Public Use
  Company Number: US-AMGEN-USASP2011013187

PATIENT
  Age: 51 Year
  Sex: Female

DRUGS (4)
  1. ENBREL [Suspect]
     Indication: PSORIATIC ARTHROPATHY
     Dosage: 50 MG, QWK
     Dates: start: 20060101, end: 20080101
  2. HUMIRA [Concomitant]
     Dosage: UNK
     Dates: start: 20080101, end: 20080101
  3. METHOTREXATE [Concomitant]
  4. ENBREL [Suspect]
     Dosage: 50 MG, UNK
     Dates: start: 20110301

REACTIONS (4)
  - HYPERSENSITIVITY [None]
  - JOINT SWELLING [None]
  - INJECTION SITE PAIN [None]
  - JOINT STIFFNESS [None]
